FAERS Safety Report 13662208 (Version 2)
Quarter: 2017Q3

REPORT INFORMATION
  Report Type: Spontaneous
  Country: KZ (occurrence: KZ)
  Receive Date: 20170616
  Receipt Date: 20170802
  Transmission Date: 20171127
  Serious: Yes (Death)
  Sender: FDA-Public Use
  Company Number: PHHY2017KZ089601

PATIENT
  Age: 30 Year
  Sex: Male

DRUGS (1)
  1. TASIGNA [Suspect]
     Active Substance: NILOTINIB
     Indication: PRODUCT USED FOR UNKNOWN INDICATION
     Dosage: UNK
     Route: 065
     Dates: start: 2016

REACTIONS (8)
  - Hypersensitivity [Fatal]
  - Shock [Fatal]
  - Dyspnoea [Unknown]
  - Blood pressure decreased [Fatal]
  - Drug intolerance [Unknown]
  - Oedema [Fatal]
  - Pyrexia [Fatal]
  - Bilirubin conjugated increased [Fatal]

NARRATIVE: CASE EVENT DATE: 2016
